FAERS Safety Report 18154710 (Version 1)
Quarter: 2020Q3

REPORT INFORMATION
  Report Type: Spontaneous
  Country: PT (occurrence: PT)
  Receive Date: 20200817
  Receipt Date: 20200817
  Transmission Date: 20201103
  Serious: Yes (Hospitalization, Other)
  Sender: FDA-Public Use
  Company Number: PT-ACCORD-195369

PATIENT
  Age: 36 Year
  Sex: Male

DRUGS (3)
  1. LORAZEPAM. [Suspect]
     Active Substance: LORAZEPAM
     Indication: ANXIETY
     Dosage: 1 MILLIGRAM (SOS)
  2. SERTRALINE [Suspect]
     Active Substance: SERTRALINE HYDROCHLORIDE
     Indication: DEPRESSION
     Dosage: 50 MILLIGRAM
     Dates: start: 2016
  3. TRAZODONE [Suspect]
     Active Substance: TRAZODONE HYDROCHLORIDE
     Indication: SLEEP DISORDER
     Dosage: 150 MILLIGRAM

REACTIONS (18)
  - Treatment noncompliance [Unknown]
  - Depression [Unknown]
  - Lung neoplasm malignant [Unknown]
  - Obsessive rumination [Not Recovered/Not Resolved]
  - Hypersomnia [Unknown]
  - Metastases to liver [Unknown]
  - Febrile neutropenia [Unknown]
  - Social avoidant behaviour [Unknown]
  - Sexual dysfunction [Unknown]
  - Behaviour disorder [Unknown]
  - Decreased interest [Unknown]
  - Metastases to lung [Unknown]
  - Negative thoughts [Unknown]
  - Quality of life decreased [Unknown]
  - Intentional product misuse [Unknown]
  - Feeling abnormal [Unknown]
  - Anxiety [Unknown]
  - Condition aggravated [Unknown]

NARRATIVE: CASE EVENT DATE: 201706
